FAERS Safety Report 9490647 (Version 2)
Quarter: 2013Q3

REPORT INFORMATION
  Report Type: Spontaneous
  Country: DE (occurrence: None)
  Receive Date: 20130826
  Receipt Date: 20130911
  Transmission Date: 20140515
  Serious: Yes (Other)
  Sender: FDA-Public Use
  Company Number: 1308-1088

PATIENT
  Age: 67 Year
  Sex: Female

DRUGS (5)
  1. EYELEA [Suspect]
     Indication: AGE-RELATED MACULAR DEGENERATION
     Dosage: 5 INJECTIONS OS
     Dates: start: 201303
  2. NOTEN (ATENOLOL) [Concomitant]
  3. PAROXETINE (PAROXETINE) [Concomitant]
  4. OXROXINE (LEVOTHYROXINE SODIUM) [Concomitant]
  5. PANADEINE FORET (PANADEINE CO) [Concomitant]

REACTIONS (5)
  - Eye pruritus [None]
  - Bladder neoplasm [None]
  - Muscle contusion [None]
  - Fall [None]
  - Eye pain [None]
